FAERS Safety Report 14160586 (Version 1)
Quarter: 2017Q4

REPORT INFORMATION
  Report Type: Spontaneous
  Country: US (occurrence: US)
  Receive Date: 20171103
  Receipt Date: 20171103
  Transmission Date: 20180321
  Serious: Yes (Other)
  Sender: FDA-Public Use
  Company Number: None

PATIENT
  Age: 61 Year
  Sex: Female
  Weight: 75.6 kg

DRUGS (12)
  1. LEVOTHYROXINE. [Concomitant]
     Active Substance: LEVOTHYROXINE
  2. METOPROLOL SUCC ER [Concomitant]
     Active Substance: METOPROLOL SUCCINATE
  3. VITAMIN B12 [Concomitant]
     Active Substance: CYANOCOBALAMIN
  4. ESTRACE [Concomitant]
     Active Substance: ESTRADIOL
  5. FUROSEMIDE. [Concomitant]
     Active Substance: FUROSEMIDE
  6. REPATHA [Concomitant]
     Active Substance: EVOLOCUMAB
  7. VITAMIN D3 [Concomitant]
     Active Substance: CHOLECALCIFEROL
  8. POTASSIUM CHLORIDE ER [Concomitant]
     Active Substance: POTASSIUM CHLORIDE
  9. CO-Q10 [Concomitant]
  10. NUVIGIL [Suspect]
     Active Substance: ARMODAFINIL
     Indication: NARCOLEPSY
     Dosage: ?          QUANTITY:30 TABLET(S);?
     Route: 048
     Dates: start: 20170710, end: 20170914
  11. TRETINOIN. [Concomitant]
     Active Substance: TRETINOIN
  12. BABY ASPIRIN [Concomitant]
     Active Substance: ASPIRIN

REACTIONS (6)
  - Flatulence [None]
  - Nausea [None]
  - Headache [None]
  - Diplopia [None]
  - Weight increased [None]
  - Fatigue [None]

NARRATIVE: CASE EVENT DATE: 20170914
